FAERS Safety Report 23520967 (Version 1)
Quarter: 2024Q1

REPORT INFORMATION
  Report Type: Spontaneous
  Country: US (occurrence: US)
  Receive Date: 20240214
  Receipt Date: 20240214
  Transmission Date: 20240410
  Serious: Yes (Other)
  Sender: FDA-Public Use
  Company Number: US-SERVIER-S24001070

PATIENT

DRUGS (6)
  1. ASPARLAS [Suspect]
     Active Substance: CALASPARGASE PEGOL-MKNL
     Indication: T-cell lymphoma
     Dosage: 3750 IU, ONE DOSE
     Route: 042
     Dates: start: 20231124, end: 20231124
  2. CYTARABINE [Suspect]
     Active Substance: CYTARABINE
     Indication: T-cell lymphoma
     Dosage: UNK
     Route: 065
     Dates: start: 20231121, end: 20231121
  3. VINCRISTINE [Suspect]
     Active Substance: VINCRISTINE
     Indication: T-cell lymphoma
     Dosage: UNK
     Route: 065
     Dates: start: 20231121, end: 20231212
  4. DEXAMETHASONE [Suspect]
     Active Substance: DEXAMETHASONE
     Indication: T-cell lymphoma
     Dosage: UNK
     Route: 065
     Dates: start: 20231121, end: 20231218
  5. DAUNORUBICIN [Suspect]
     Active Substance: DAUNORUBICIN
     Indication: T-cell lymphoma
     Dosage: UNK
     Route: 065
     Dates: start: 20231121, end: 20231212
  6. METHOTREXATE [Suspect]
     Active Substance: METHOTREXATE
     Indication: T-cell lymphoma
     Dosage: UNK
     Route: 065
     Dates: start: 20231128, end: 20231219

REACTIONS (1)
  - Enzyme activity decreased [Unknown]

NARRATIVE: CASE EVENT DATE: 20231128
